FAERS Safety Report 17607516 (Version 1)
Quarter: 2020Q1

REPORT INFORMATION
  Report Type: Spontaneous
  Country: CN (occurrence: CN)
  Receive Date: 20200331
  Receipt Date: 20200331
  Transmission Date: 20200409
  Serious: Yes (Other)
  Sender: FDA-Public Use
  Company Number: CN-NOVOPROD-720604

PATIENT
  Age: 68 Year
  Sex: Male

DRUGS (1)
  1. NOVOMIX 30 PENFILL [Suspect]
     Active Substance: INSULIN ASPART
     Indication: TYPE 2 DIABETES MELLITUS
     Dosage: 10 IU, TID
     Route: 058
     Dates: start: 20200304, end: 20200308

REACTIONS (3)
  - Blood glucose decreased [Unknown]
  - Dyspnoea [Recovering/Resolving]
  - Depressed level of consciousness [Recovering/Resolving]

NARRATIVE: CASE EVENT DATE: 20200308
